FAERS Safety Report 23516827 (Version 1)
Quarter: 2024Q1

REPORT INFORMATION
  Report Type: 
  Country: None (occurrence: None)
  Receive Date: 20240213
  Receipt Date: 20240213
  Transmission Date: 20240410
  Serious: No
  Sender: FDA-Public Use
  Company Number: CA-ROCHE-3360667

PATIENT
  Weight: 71 kg

DRUGS (48)
  1. ACTEMRA [Suspect]
     Active Substance: TOCILIZUMAB
     Dosage: ON 10/SEP/2020, SHE RECEIVED HER LAST TOCILIZUMAB INFUSION (B2098 EXP 30/JUN/2020).
     Dates: start: 20111019, end: 20120430
  2. ACTEMRA [Suspect]
     Active Substance: TOCILIZUMAB
     Dates: start: 20180104, end: 20200226
  3. ACTEMRA [Suspect]
     Active Substance: TOCILIZUMAB
     Dates: start: 20180424
  4. ACTEMRA [Suspect]
     Active Substance: TOCILIZUMAB
     Dates: start: 20180522
  5. ACTEMRA [Suspect]
     Active Substance: TOCILIZUMAB
     Dates: start: 20180620
  6. ACTEMRA [Suspect]
     Active Substance: TOCILIZUMAB
     Dates: start: 20120627, end: 20120725
  7. ACTEMRA [Suspect]
     Active Substance: TOCILIZUMAB
     Dates: start: 20120822, end: 20160205
  8. ACTEMRA [Suspect]
     Active Substance: TOCILIZUMAB
     Dates: start: 20160308, end: 20190806
  9. ACTEMRA [Suspect]
     Active Substance: TOCILIZUMAB
     Dates: start: 20190903
  10. ACTEMRA [Suspect]
     Active Substance: TOCILIZUMAB
     Dates: start: 20200325
  11. ACTEMRA [Suspect]
     Active Substance: TOCILIZUMAB
     Dates: start: 2019
  12. ACTEMRA [Suspect]
     Active Substance: TOCILIZUMAB
     Dates: start: 20160308, end: 2019
  13. ACTEMRA [Suspect]
     Active Substance: TOCILIZUMAB
     Dates: start: 20120528, end: 20120725
  14. ENBREL [Suspect]
     Active Substance: ETANERCEPT
  15. PREDNISONE [Suspect]
     Active Substance: PREDNISONE
  16. ACTONEL [Concomitant]
     Active Substance: RISEDRONATE SODIUM
  17. AVAPRO [Concomitant]
     Active Substance: IRBESARTAN
  18. METHOTREXATE [Concomitant]
     Active Substance: METHOTREXATE
  19. MYRBETRIQ [Concomitant]
     Active Substance: MIRABEGRON
  20. KOMBIGLYZE XR [Concomitant]
     Active Substance: METFORMIN HYDROCHLORIDE\SAXAGLIPTIN HYDROCHLORIDE
  21. IRBESARTAN [Concomitant]
     Active Substance: IRBESARTAN
  22. PANTOPRAZOLE [Concomitant]
     Active Substance: PANTOPRAZOLE
  23. FISH OIL [Concomitant]
     Active Substance: FISH OIL
  24. NALOXONE HYDROCHLORIDE\OXYCODONE HYDROCHLORIDE [Concomitant]
     Active Substance: NALOXONE HYDROCHLORIDE\OXYCODONE HYDROCHLORIDE
  25. CANNABIS SATIVA SUBSP. INDICA TOP [Concomitant]
     Active Substance: CANNABIS SATIVA SUBSP. INDICA TOP
  26. ZOPICLONE [Concomitant]
     Active Substance: ZOPICLONE
  27. ATORVASTATIN [Concomitant]
     Active Substance: ATORVASTATIN
  28. ASPIRIN [Concomitant]
     Active Substance: ASPIRIN
  29. LEFLUNOMIDE [Concomitant]
     Active Substance: LEFLUNOMIDE
  30. DAPAGLIFLOZIN [Concomitant]
     Active Substance: DAPAGLIFLOZIN
  31. TOUJEO [Concomitant]
     Active Substance: INSULIN GLARGINE
  32. OZEMPIC [Concomitant]
     Active Substance: SEMAGLUTIDE
  33. CITALOPRAM [Concomitant]
     Active Substance: CITALOPRAM HYDROBROMIDE
  34. AMLODIPINE [Concomitant]
     Active Substance: AMLODIPINE BESYLATE
  35. CALCIUM [Concomitant]
     Active Substance: CALCIUM
  36. CANNABIDIOL [Concomitant]
     Active Substance: CANNABIDIOL
  37. CORTEF [Concomitant]
     Active Substance: HYDROCORTISONE
  38. CRESTOR [Concomitant]
     Active Substance: ROSUVASTATIN CALCIUM
     Dates: end: 201905
  39. DICLOFENAC [Concomitant]
     Active Substance: DICLOFENAC
  40. DILAUDID [Concomitant]
     Active Substance: HYDROMORPHONE HYDROCHLORIDE
  41. FOLIC ACID [Concomitant]
     Active Substance: FOLIC ACID
  42. PREGABALIN [Concomitant]
     Active Substance: PREGABALIN
  43. TYLENOL [Concomitant]
     Active Substance: ACETAMINOPHEN
  44. CITALOPRAM [Concomitant]
     Active Substance: CITALOPRAM HYDROBROMIDE
  45. TOUJEO [Concomitant]
     Active Substance: INSULIN GLARGINE
  46. DOXYCYCLINE [Concomitant]
     Active Substance: DOXYCYCLINE
     Dates: start: 20210423, end: 20210430
  47. FLUCONAZOLE [Concomitant]
     Active Substance: FLUCONAZOLE
  48. ASPIRIN [Concomitant]
     Active Substance: ASPIRIN

REACTIONS (68)
  - Helicobacter infection [None]
  - Gait disturbance [None]
  - Arthralgia [None]
  - Neck pain [None]
  - Pain [None]
  - Oedema peripheral [None]
  - Drug ineffective [None]
  - Pain in extremity [None]
  - Dizziness [None]
  - Weight increased [None]
  - Joint swelling [None]
  - Nasopharyngitis [None]
  - Peripheral swelling [None]
  - Skin induration [None]
  - Feeling hot [None]
  - Dyspnoea [None]
  - Joint swelling [None]
  - Cough [None]
  - Diarrhoea [None]
  - Underdose [None]
  - Incorrect dose administered [None]
  - Nausea [None]
  - Skin ulcer [None]
  - Blood pressure increased [None]
  - Blood glucose increased [None]
  - Blood pressure fluctuation [None]
  - Blood pressure systolic increased [None]
  - Disability assessment scale score increased [None]
  - Feeling jittery [None]
  - Hypertension [None]
  - Feeling hot [None]
  - Platelet count decreased [None]
  - Arthropathy [None]
  - Weight decreased [None]
  - Movement disorder [None]
  - Heart rate increased [None]
  - Adrenal insufficiency [None]
  - Cortisol decreased [None]
  - Back pain [None]
  - Oxygen saturation decreased [None]
  - Oedema [None]
  - Sinusitis [None]
  - Osteoarthritis [None]
  - Multiple fractures [None]
  - Productive cough [None]
  - Alanine aminotransferase increased [None]
  - Hepatic enzyme increased [None]
  - Musculoskeletal stiffness [None]
  - Malaise [None]
  - Heart rate decreased [None]
  - Arthritis [None]
  - Spinal pain [None]
  - Blood pressure diastolic decreased [None]
  - Blood pressure diastolic abnormal [None]
  - Hypersensitivity [None]
  - Eye swelling [None]
  - Rhinorrhoea [None]
  - Cystitis [None]
  - Kidney infection [None]
  - Blood pressure systolic abnormal [None]
  - Lacrimation increased [None]
  - Dysphonia [None]
  - Peripheral swelling [None]
  - Illness [None]
  - Headache [None]
  - Lower respiratory tract infection [None]
  - Bronchitis [None]
  - Pruritus [None]

NARRATIVE: CASE EVENT DATE: 20120101
